FAERS Safety Report 11130481 (Version 5)
Quarter: 2016Q3

REPORT INFORMATION
  Report Type: Spontaneous
  Country: US (occurrence: US)
  Receive Date: 20150522
  Receipt Date: 20160815
  Transmission Date: 20161109
  Serious: Yes (Hospitalization, Other)
  Sender: FDA-Public Use
  Company Number: US-ASTRAZENECA-2014SE53937

PATIENT
  Age: 82 Year
  Sex: Male
  Weight: 86.2 kg

DRUGS (22)
  1. DIOVAN [Concomitant]
     Active Substance: VALSARTAN
  2. LIPITOR [Concomitant]
     Active Substance: ATORVASTATIN CALCIUM
  3. BYDUREON [Suspect]
     Active Substance: EXENATIDE
     Indication: TYPE 2 DIABETES MELLITUS
     Route: 058
     Dates: start: 201406
  4. FLONASE [Concomitant]
     Active Substance: FLUTICASONE PROPIONATE
  5. ALLOPURINOL. [Concomitant]
     Active Substance: ALLOPURINOL
  6. TORSEMIDE. [Concomitant]
     Active Substance: TORSEMIDE
  7. LEVOTHYROXINE. [Concomitant]
     Active Substance: LEVOTHYROXINE
  8. AMBIEN [Concomitant]
     Active Substance: ZOLPIDEM TARTRATE
  9. CALCITRATE [Concomitant]
     Active Substance: CALCIUM CITRATE
  10. VALSARTAN. [Concomitant]
     Active Substance: VALSARTAN
  11. PLAVIX [Concomitant]
     Active Substance: CLOPIDOGREL BISULFATE
  12. COREG [Concomitant]
     Active Substance: CARVEDILOL
  13. EVOXAC [Concomitant]
     Active Substance: CEVIMELINE HYDROCHLORIDE
  14. ZOLPIDEM [Concomitant]
     Active Substance: ZOLPIDEM\ZOLPIDEM TARTRATE
  15. BYDUREON [Suspect]
     Active Substance: EXENATIDE
     Indication: TYPE 2 DIABETES MELLITUS
     Route: 058
  16. AVODART [Concomitant]
     Active Substance: DUTASTERIDE
  17. GABAPENTIN. [Concomitant]
     Active Substance: GABAPENTIN
  18. NEXIUM [Suspect]
     Active Substance: ESOMEPRAZOLE MAGNESIUM
     Route: 048
  19. LANTUS [Concomitant]
     Active Substance: INSULIN GLARGINE
     Indication: TYPE 2 DIABETES MELLITUS
     Dosage: 20 UNITS, EVERY NIGHT AT BEDTIME
     Route: 058
  20. CLARITIN [Concomitant]
     Active Substance: LORATADINE
  21. NORVASC [Concomitant]
     Active Substance: AMLODIPINE BESYLATE
  22. CALCITRIOL. [Concomitant]
     Active Substance: CALCITRIOL

REACTIONS (12)
  - Cataract [Unknown]
  - Injection site mass [Unknown]
  - Blood glucose increased [Unknown]
  - Device malfunction [Unknown]
  - Injection site nodule [Recovering/Resolving]
  - Fall [Unknown]
  - Underdose [Unknown]
  - Drug dose omission [Unknown]
  - Injection site swelling [Not Recovered/Not Resolved]
  - Blood glucose fluctuation [Unknown]
  - Weight increased [Unknown]
  - Rib fracture [Unknown]

NARRATIVE: CASE EVENT DATE: 2014
